FAERS Safety Report 8479099 (Version 2)
Quarter: 2015Q2

REPORT INFORMATION
  Report Type: Report from Study
  Country: GB (occurrence: GB)
  Receive Date: 20120327
  Receipt Date: 20150515
  Transmission Date: 20150821
  Serious: Yes (Hospitalization)
  Sender: FDA-Public Use
  Company Number: GB-ROCHE-1050498

PATIENT
  Age: 73 Year
  Sex: Male
  Weight: 62 kg

DRUGS (4)
  1. BEVACIZUMAB [Suspect]
     Active Substance: BEVACIZUMAB
     Indication: GASTRIC CANCER
     Dosage: 464 UNITS NOT PROVIDED, LAST DOSE PRIOR TO SAE: 04/OCT/2011
     Route: 042
     Dates: start: 20111004
  2. CAPECITABINE. [Suspect]
     Active Substance: CAPECITABINE
     Indication: GASTRIC CANCER
     Dosage: 1000 UNITS NOT PROVIDED, LAST DOSE PRIOR TO SAE: 19/OCT/2011
     Route: 048
     Dates: start: 20111004
  3. EPIRUBICIN [Suspect]
     Active Substance: EPIRUBICIN
     Indication: GASTRIC CANCER
     Dosage: 87 UNITS NOT PROVIDED, LAST DOSE PRIOR TO SAE: 04/OCT/2011
     Route: 042
     Dates: start: 20111004
  4. CISPLATIN. [Suspect]
     Active Substance: CISPLATIN
     Indication: GASTRIC CANCER
     Dosage: 104 UNITS NOT PROVIDED, LAST DOSE PRIOR TO SAE: 04/OCT/2011
     Route: 042
     Dates: start: 20111004

REACTIONS (1)
  - Peripheral ischaemia [Recovering/Resolving]

NARRATIVE: CASE EVENT DATE: 20111016
